FAERS Safety Report 6312096-0 (Version None)
Quarter: 2009Q3

REPORT INFORMATION
  Report Type: 
  Country: None (occurrence: None)
  Receive Date: 20090817
  Receipt Date: 20090813
  Transmission Date: 20100115
  Serious: Yes (Death)
  Sender: FDA-Public Use
  Company Number: PHHY2009BR25509

PATIENT
  Sex: Male

DRUGS (1)
  1. FORASEQ [Suspect]
     Indication: LUNG NEOPLASM MALIGNANT
     Dosage: 12/400 MCG, TWICE/DAY

REACTIONS (2)
  - LUNG NEOPLASM [None]
  - LUNG NEOPLASM MALIGNANT [None]
